FAERS Safety Report 8218144-5 (Version None)
Quarter: 2012Q1

REPORT INFORMATION
  Report Type: 
  Country: None (occurrence: None)
  Receive Date: 20120316
  Receipt Date: 20120316
  Transmission Date: 20120608
  Serious: Yes (Hospitalization)
  Sender: FDA-Public Use
  Company Number: None

PATIENT
  Sex: Female
  Weight: 72.94 kg

DRUGS (11)
  1. IRINOTECAN HYDROCHLORIDE [Suspect]
     Dosage: 180 MG/M2
     Dates: start: 20120312
  2. LEUCOVORIN CALCIUM [Suspect]
     Indication: ADENOCARCINOMA PANCREAS
     Dosage: 400 MG/M2
     Dates: start: 20120312
  3. HEPARIN LOCK-FLUSH [Concomitant]
  4. FLUOROURACIL [Suspect]
     Dosage: ~2800 MG/M2
     Dates: start: 20120312, end: 20120314
  5. NEUPOGEN [Concomitant]
  6. SODIUM CHLORIDE [Concomitant]
  7. BENADRYL [Concomitant]
  8. OXALIPLATIN [Suspect]
     Indication: ADENOCARCINOMA PANCREAS
     Dosage: 85 MG/M2
     Dates: start: 20120312
  9. LIDOCAINE-PRILOCAINE [Concomitant]
  10. ZOFRAN [Concomitant]
  11. PROCHLORPERAZINE MALEATE [Concomitant]

REACTIONS (3)
  - MYOCARDIAL INFARCTION [None]
  - CHEST PAIN [None]
  - APHASIA [None]
